FAERS Safety Report 18742989 (Version 1)
Quarter: 2021Q1

REPORT INFORMATION
  Report Type: Spontaneous
  Country: NZ (occurrence: NZ)
  Receive Date: 20210115
  Receipt Date: 20210115
  Transmission Date: 20210419
  Serious: Yes (Hospitalization, Other)
  Sender: FDA-Public Use
  Company Number: NZ-SCIEGEN-2021SCILIT00005

PATIENT
  Age: 44 Year
  Sex: Male

DRUGS (8)
  1. CITALOPRAM [Suspect]
     Active Substance: CITALOPRAM HYDROBROMIDE
     Indication: NERVOUS SYSTEM DISORDER
     Route: 065
  2. MELATONIN [Suspect]
     Active Substance: MELATONIN
     Indication: INSOMNIA
     Dosage: 1.5 MONTHS BEFORE THE ONSET OF THE RASH
     Route: 065
  3. PREDNISONE. [Interacting]
     Active Substance: PREDNISONE
     Indication: SUBACUTE CUTANEOUS LUPUS ERYTHEMATOSUS
     Dosage: TAPERED OVER 4 WEEKS
     Route: 065
  4. LAMOTRIGINE TABLETS [Suspect]
     Active Substance: LAMOTRIGINE
     Indication: EPILEPSY
     Route: 065
  5. CARBAMAZEPINE. [Suspect]
     Active Substance: CARBAMAZEPINE
     Indication: EPILEPSY
     Route: 065
  6. SODIUM VALPROATE [Suspect]
     Active Substance: VALPROATE SODIUM
     Indication: EPILEPSY
     Route: 065
  7. HYDROXYCHLOROQUINE [Interacting]
     Active Substance: HYDROXYCHLOROQUINE
     Indication: SUBACUTE CUTANEOUS LUPUS ERYTHEMATOSUS
     Route: 065
  8. LEVETIRACETAM. [Suspect]
     Active Substance: LEVETIRACETAM
     Indication: EPILEPSY
     Route: 065

REACTIONS (2)
  - Unmasking of previously unidentified disease [Recovered/Resolved]
  - Subacute cutaneous lupus erythematosus [Recovered/Resolved]
